FAERS Safety Report 4944064-5 (Version None)
Quarter: 2006Q1

REPORT INFORMATION
  Report Type: 
  Country: None (occurrence: None)
  Receive Date: 20060315
  Receipt Date: 20060307
  Transmission Date: 20060701
  Serious: Yes (Death)
  Sender: FDA-Public Use
  Company Number: JP-JNJFOC-20050607336

PATIENT
  Sex: Female
  Weight: 60 kg

DRUGS (20)
  1. REMICADE [Suspect]
     Route: 042
  2. REMICADE [Suspect]
     Route: 042
  3. REMICADE [Suspect]
     Route: 042
  4. REMICADE [Suspect]
     Route: 042
  5. REMICADE [Suspect]
     Route: 042
  6. REMICADE [Suspect]
     Route: 042
  7. REMICADE [Suspect]
     Route: 042
  8. REMICADE [Suspect]
     Indication: RHEUMATOID ARTHRITIS
     Route: 042
  9. RHEUMATREX [Suspect]
     Route: 048
  10. RHEUMATREX [Suspect]
     Route: 048
  11. RHEUMATREX [Suspect]
     Indication: RHEUMATOID ARTHRITIS
     Route: 048
  12. ISCOTIN [Suspect]
     Indication: ANTIBIOTIC PROPHYLAXIS
     Route: 048
  13. PREDONINE [Suspect]
     Indication: RHEUMATOID ARTHRITIS
     Route: 048
  14. LOXOMARIN [Suspect]
     Indication: RHEUMATOID ARTHRITIS
     Dosage: 2 TABS
     Route: 048
  15. PYDOXAL [Suspect]
     Indication: PROPHYLAXIS
     Dosage: 2 TAB
     Route: 048
  16. ACTONEL [Suspect]
     Indication: OSTEOPOROSIS
     Dosage: 1 TAB
     Route: 048
  17. FOLIAMIN [Concomitant]
     Indication: PROPHYLAXIS
     Dosage: 1 TAB
     Route: 048
  18. GASTER [Concomitant]
     Dosage: 2 TAB
     Route: 048
  19. ADRENAL HORMONE PREPARATIONS [Concomitant]
     Indication: RHEUMATOID ARTHRITIS
  20. PROMAC (JPN) [Concomitant]

REACTIONS (7)
  - DISSEMINATED INTRAVASCULAR COAGULATION [None]
  - DRUG INTERACTION [None]
  - HEPATIC ENCEPHALOPATHY [None]
  - HEPATITIS B [None]
  - INFECTION [None]
  - MUSCLE HAEMORRHAGE [None]
  - SEPSIS [None]
